FAERS Safety Report 9942262 (Version 2)
Quarter: 2014Q1

REPORT INFORMATION
  Report Type: Report from Study
  Country: US (occurrence: US)
  Receive Date: 20140303
  Receipt Date: 20140303
  Transmission Date: 20141002
  Serious: Yes (Other)
  Sender: FDA-Public Use
  Company Number: US-ABBVIE-11P-163-0884349-00

PATIENT
  Age: 56 Year
  Sex: Male

DRUGS (7)
  1. HUMIRA [Suspect]
     Indication: PSORIATIC ARTHROPATHY
     Dates: start: 201106, end: 20111220
  2. HUMIRA [Suspect]
     Dosage: 80 MG LOADING DOSE
     Dates: start: 20130119
  3. DIAZEPAM [Concomitant]
     Indication: ANXIETY
     Dosage: 5 MG IN THE AM, 10 MG IN THE PM
  4. DIAZEPAM [Concomitant]
     Indication: INSOMNIA
  5. LASIX [Concomitant]
     Indication: PRODUCT USED FOR UNKNOWN INDICATION
     Dosage: HAS TAKEN LESS THAN 5 TABLETS
     Dates: start: 201107
  6. LISINOPRIL [Concomitant]
     Indication: BLOOD PRESSURE
     Route: 048
  7. LISINOPRIL [Concomitant]

REACTIONS (8)
  - Sinusitis [Unknown]
  - Swelling [Not Recovered/Not Resolved]
  - Pyrexia [Unknown]
  - Weight increased [Not Recovered/Not Resolved]
  - Sinusitis [Unknown]
  - Vitamin D deficiency [Unknown]
  - Vitamin B complex deficiency [Unknown]
  - Psoriasis [Unknown]
